FAERS Safety Report 10378229 (Version 1)
Quarter: 2014Q1

REPORT INFORMATION
  Report Type: Spontaneous
  Country: US (occurrence: None)
  Receive Date: 20140306
  Receipt Date: 20140306
  Transmission Date: 20141002
  Serious: Yes (Other)
  Sender: FDA-Public Use
  Company Number: 163-21880-13013463

PATIENT
  Age: 74 Year
  Sex: Female

DRUGS (9)
  1. REVLIMID (LENALIDOMIDE) (10 MILLIGRAM, CAPSULES) [Suspect]
     Indication: 5Q MINUS SYNDROME
     Route: 048
     Dates: start: 20121114
  2. ALLERGY MEDICATION (ALLERGY MEDICATION) [Concomitant]
  3. AMBIEN (ZOLPIDEM TARTRATE) [Concomitant]
  4. COUMADIN (WARFARIN SODIUM) [Concomitant]
  5. DIOVAN [Concomitant]
  6. FERROUS SULFATE (FERROUS SULFATE) [Concomitant]
  7. FOLIC ACID [Concomitant]
  8. FUROSEMIDE [Suspect]
  9. GLIPIZIDE [Concomitant]

REACTIONS (2)
  - Leukaemia [None]
  - Myelodysplastic syndrome transformation [None]
